FAERS Safety Report 24539483 (Version 1)
Quarter: 2024Q4

REPORT INFORMATION
  Report Type: Spontaneous
  Country: DK (occurrence: DK)
  Receive Date: 20241023
  Receipt Date: 20241023
  Transmission Date: 20250114
  Serious: Yes (Hospitalization)
  Sender: SANDOZ
  Company Number: DK-NOVNCHHQ-PHHY2019DK205131

PATIENT
  Age: 56 Year
  Sex: Male

DRUGS (2)
  1. TERBINAFINE HYDROCHLORIDE [Suspect]
     Active Substance: TERBINAFINE HYDROCHLORIDE
     Indication: Onychomycosis
     Dosage: 250 MG, QD, STYRKE: 250MG
     Route: 048
     Dates: start: 20190429, end: 20190826
  2. LANSOPRAZOL TEVA [Concomitant]
     Indication: Dyspepsia
     Dosage: 30 MG, QD, STYRKE: 30MG
     Route: 048
     Dates: start: 20140218

REACTIONS (7)
  - Cholelithiasis [Not Recovered/Not Resolved]
  - Hepatic enzyme abnormal [Not Recovered/Not Resolved]
  - Blood lactate dehydrogenase increased [Not Recovered/Not Resolved]
  - Alanine aminotransferase increased [Not Recovered/Not Resolved]
  - Blood alkaline phosphatase increased [Not Recovered/Not Resolved]
  - Pain [Not Recovered/Not Resolved]
  - Jaundice [Not Recovered/Not Resolved]

NARRATIVE: CASE EVENT DATE: 20190801
